FAERS Safety Report 9514320 (Version 1)
Quarter: 2013Q3

REPORT INFORMATION
  Report Type: Spontaneous
  Country: US (occurrence: US)
  Receive Date: 20130911
  Receipt Date: 20130911
  Transmission Date: 20140515
  Serious: Yes (Other)
  Sender: FDA-Public Use
  Company Number: US-JNJFOC-20130903183

PATIENT
  Sex: 0

DRUGS (2)
  1. TYLENOL UNSPECIFIED [Suspect]
     Route: 065
  2. TYLENOL UNSPECIFIED [Suspect]
     Indication: PAIN MANAGEMENT
     Route: 065

REACTIONS (2)
  - Liver injury [Unknown]
  - Overdose [Unknown]
